FAERS Safety Report 10042476 (Version 1)
Quarter: 2014Q1

REPORT INFORMATION
  Report Type: Spontaneous
  Country: US (occurrence: US)
  Receive Date: 20140327
  Receipt Date: 20140327
  Transmission Date: 20141002
  Serious: No
  Sender: FDA-Public Use
  Company Number: US-PFIZER INC-2014085034

PATIENT
  Age: 64 Year
  Sex: Female

DRUGS (1)
  1. SPIRONOLACTONE [Suspect]
     Dosage: UNK

REACTIONS (2)
  - Breast pain [Unknown]
  - Galactorrhoea [Unknown]
